FAERS Safety Report 6849110-X (Version None)
Quarter: 2010Q3

REPORT INFORMATION
  Report Type: 
  Country: None (occurrence: None)
  Receive Date: 20100716
  Receipt Date: 20071114
  Transmission Date: 20110219
  Serious: No
  Sender: FDA-Public Use
  Company Number: US-PFIZER INC-2007080889

PATIENT
  Sex: Female
  Weight: 59.545 kg

DRUGS (10)
  1. CHANTIX [Suspect]
     Indication: SMOKING CESSATION THERAPY
     Route: 048
     Dates: start: 20070918, end: 20070923
  2. FLEXERIL [Concomitant]
  3. HYDROCODONE [Concomitant]
  4. HYDROCODONE [Concomitant]
  5. WARFARIN SODIUM [Concomitant]
  6. CALCIUM [Concomitant]
  7. PROPAFENONE [Concomitant]
  8. PAROXETINE [Concomitant]
  9. QUINAPRIL [Concomitant]
  10. IBUPROFEN [Concomitant]

REACTIONS (2)
  - INFLUENZA LIKE ILLNESS [None]
  - MYALGIA [None]
